FAERS Safety Report 4976242-3 (Version None)
Quarter: 2006Q2

REPORT INFORMATION
  Report Type: 
  Country: None (occurrence: None)
  Receive Date: 20060412
  Receipt Date: 20060329
  Transmission Date: 20061013
  Serious: Yes (Hospitalization)
  Sender: FDA-Public Use
  Company Number: IE-2006-007317

PATIENT
  Age: 63 Year
  Sex: Female

DRUGS (1)
  1. ULTRAVIST 370 [Suspect]

REACTIONS (2)
  - ANAPHYLACTIC SHOCK [None]
  - MYOCARDIAL INFARCTION [None]
